FAERS Safety Report 15386256 (Version 2)
Quarter: 2020Q3

REPORT INFORMATION
  Report Type: Spontaneous
  Country: US (occurrence: US)
  Receive Date: 20180914
  Receipt Date: 20200902
  Transmission Date: 20201102
  Serious: Yes (Hospitalization, Congenital Anomaly, Other)
  Sender: FDA-Public Use
  Company Number: US-SA-2018SA254143

PATIENT

DRUGS (2)
  1. SIMILAC WITH IRON [Concomitant]
     Dosage: UNK
     Route: 048
     Dates: start: 19990908, end: 19990916
  2. CLOMID [Suspect]
     Active Substance: CLOMIPHENE CITRATE
     Route: 064

REACTIONS (36)
  - Tracheo-oesophageal fistula [Unknown]
  - Anal atresia [Unknown]
  - Hyperbilirubinaemia [Recovered/Resolved]
  - Gastrointestinal disorder congenital [Unknown]
  - VACTERL syndrome [Recovered/Resolved]
  - Congenital spinal cord anomaly [Unknown]
  - Penoscrotal transposition [Unknown]
  - Umbilical cord abnormality [Unknown]
  - Feeling abnormal [Unknown]
  - Irritability [Unknown]
  - Oesophageal atresia [Unknown]
  - Foetal growth restriction [Unknown]
  - Respiratory disorder [Unknown]
  - Conjunctivitis [Recovered/Resolved]
  - Genitalia external ambiguous [Unknown]
  - Patent ductus arteriosus [Unknown]
  - Screaming [Unknown]
  - Respiratory syncytial virus bronchiolitis [Unknown]
  - Erythema toxicum neonatorum [Unknown]
  - Urinary tract infection bacterial [Unknown]
  - Crying [Unknown]
  - Multiple congenital abnormalities [Unknown]
  - Accessory auricle [Unknown]
  - Cardiac murmur [Unknown]
  - Neonatal respiratory distress [Unknown]
  - Constipation [Unknown]
  - Vomiting [Unknown]
  - Pyrexia [Unknown]
  - Aortic disorder [Unknown]
  - Adrenogenital syndrome [Unknown]
  - Premature baby [Unknown]
  - Dehydration [Unknown]
  - Congenital musculoskeletal anomaly [Unknown]
  - Pneumothorax [Unknown]
  - Diarrhoea [Unknown]
  - Urine odour abnormal [Unknown]

NARRATIVE: CASE EVENT DATE: 1999
